FAERS Safety Report 19159874 (Version 1)
Quarter: 2021Q2

REPORT INFORMATION
  Report Type: Spontaneous
  Country: CA (occurrence: CA)
  Receive Date: 20210420
  Receipt Date: 20210420
  Transmission Date: 20210717
  Serious: Yes (Other)
  Sender: FDA-Public Use
  Company Number: CA-ELI_LILLY_AND_COMPANY-CA202104006241

PATIENT
  Age: 67 Year
  Sex: Female

DRUGS (2)
  1. ADCIRCA [Suspect]
     Active Substance: TADALAFIL
     Indication: PULMONARY ARTERIAL HYPERTENSION
     Dosage: 40 MG, DAILY
     Route: 065
     Dates: start: 20171021
  2. VOLIBRIS [Suspect]
     Active Substance: AMBRISENTAN
     Indication: PULMONARY ARTERIAL HYPERTENSION
     Dosage: UNK, UNKNOWN
     Route: 065

REACTIONS (2)
  - Fall [Recovering/Resolving]
  - Upper limb fracture [Recovering/Resolving]

NARRATIVE: CASE EVENT DATE: 202007
